FAERS Safety Report 5887678-0 (Version None)
Quarter: 2008Q3

REPORT INFORMATION
  Report Type: 
  Country: None (occurrence: None)
  Receive Date: 20080918
  Receipt Date: 20080916
  Transmission Date: 20090109
  Serious: Yes (Hospitalization)
  Sender: FDA-Public Use
  Company Number: FR-BRISTOL-MYERS SQUIBB COMPANY-14201990

PATIENT
  Sex: Male
  Weight: 100 kg

DRUGS (1)
  1. ORENCIA [Suspect]
     Indication: RHEUMATOID ARTHRITIS
     Dosage: STARTED IN 2004-2005
     Route: 042
     Dates: start: 20040101

REACTIONS (3)
  - DYSPNOEA [None]
  - LUNG INFECTION [None]
  - PLEURAL EFFUSION [None]
